FAERS Safety Report 21736169 (Version 6)
Quarter: 2024Q3

REPORT INFORMATION
  Report Type: Spontaneous
  Country: DE (occurrence: DE)
  Receive Date: 20221215
  Receipt Date: 20240701
  Transmission Date: 20241017
  Serious: Yes (Other)
  Sender: CELLTRION
  Company Number: DE-CELLTRION INC.-2022DE020873

PATIENT

DRUGS (18)
  1. TRUXIMA [Suspect]
     Active Substance: RITUXIMAB-ABBS
     Indication: Diffuse large B-cell lymphoma
     Dosage: 2ND LINE THERAPY R-GDP
     Route: 042
     Dates: start: 20211101, end: 20220201
  2. TRUXIMA [Suspect]
     Active Substance: RITUXIMAB-ABBS
     Dosage: 1ST LINE THERAPY, R-CHOP
     Route: 042
     Dates: start: 20210101, end: 20210501
  3. TRUXIMA [Suspect]
     Active Substance: RITUXIMAB-ABBS
     Dosage: 4TH LINE, POLATUZUMAB-VEDOTIN, BENDAMUSTIN, RITUXIMAB, VENETOCLAX
     Route: 042
     Dates: start: 20220719, end: 20220801
  4. RITUXIMAB [Suspect]
     Active Substance: RITUXIMAB
     Indication: Diffuse large B-cell lymphoma
     Dosage: 2ND LINE THERAPY R-GDP
     Route: 042
     Dates: start: 20211101, end: 20220201
  5. RITUXIMAB [Suspect]
     Active Substance: RITUXIMAB
     Dosage: 1ST LINE THERAPY, R-CHOP
     Route: 042
     Dates: start: 20210101, end: 20210501
  6. RITUXIMAB [Suspect]
     Active Substance: RITUXIMAB
     Dosage: 4TH LINE, POLATUZUMAB-VEDOTIN, BENDAMUSTIN, RITUXIMAB, VENETOCLAX
     Route: 042
     Dates: start: 20220719, end: 20220801
  7. CYCLOPHOSPHAMIDE [Suspect]
     Active Substance: CYCLOPHOSPHAMIDE
     Indication: Diffuse large B-cell lymphoma
     Dosage: 5TH LINE, CYCLOPHOSPHAMIDE AND TAFASITAMAB
     Route: 065
     Dates: start: 20220819, end: 20221025
  8. CYCLOPHOSPHAMIDE [Suspect]
     Active Substance: CYCLOPHOSPHAMIDE
     Dosage: 3RD LINE, ALLO-SCT MSD CONDITIONIONING: FLUDARABINE, CYCLOPHOSPHAMIDE, THIOTEPA
     Route: 065
     Dates: start: 20220208, end: 20220213
  9. BENDAMUSTINE HYDROCHLORIDE [Suspect]
     Active Substance: BENDAMUSTINE HYDROCHLORIDE
     Indication: Diffuse large B-cell lymphoma
     Dosage: 4TH LINE, POLATUZUMAB-VEDOTIN, BENDAMUSTIN, RITUXIMAB, VENETOCLAX
     Route: 065
     Dates: start: 20220719, end: 20220801
  10. VENETOCLAX [Suspect]
     Active Substance: VENETOCLAX
     Indication: Diffuse large B-cell lymphoma
     Dosage: 4TH LINE, POLATUZUMAB-VEDOTIN, BENDAMUSTIN, RITUXIMAB, VENETOCLAX
     Route: 048
     Dates: start: 20220719, end: 20220801
  11. THIOTEPA [Suspect]
     Active Substance: THIOTEPA
     Indication: Diffuse large B-cell lymphoma
     Dosage: 3RD LINE, ALLO-SCT MSD CONDITIONIONING: FLUDARABINE, CYCLOPHOSPHAMIDE, THIOTEPA
     Route: 065
     Dates: start: 20220208, end: 20220213
  12. TAFASITAMAB-CXIX [Suspect]
     Active Substance: TAFASITAMAB-CXIX
     Indication: Diffuse large B-cell lymphoma
     Dosage: 5TH LINE, CYCLOPHOSPHAMIDE AND TAFASITAMAB
     Route: 065
     Dates: start: 20220819, end: 20221025
  13. TAFASITAMAB-CXIX [Suspect]
     Active Substance: TAFASITAMAB-CXIX
     Dosage: 5TH LINE, CYCLOPHOSPHAMIDE AND TAFASITAMAB
     Dates: start: 20220819, end: 20221025
  14. TAFASITAMAB-CXIX [Suspect]
     Active Substance: TAFASITAMAB-CXIX
     Dosage: 5TH LINE, CYCLOPHOSPHAMIDE AND TAFASITAMAB
     Dates: start: 20220819, end: 20221025
  15. FLUDARABINE PHOSPHATE [Suspect]
     Active Substance: FLUDARABINE PHOSPHATE
     Indication: Diffuse large B-cell lymphoma
     Dosage: 3RD LINE, ALLO-SCT MSD CONDITIONIONING: FLUDARABINE, CYCLOPHOSPHAMIDE, THIOTEPA
     Route: 065
     Dates: start: 20220208, end: 20220213
  16. POLATUZUMAB VEDOTIN [Suspect]
     Active Substance: POLATUZUMAB VEDOTIN
     Indication: Diffuse large B-cell lymphoma
     Dosage: 4TH LINE, POLATUZUMAB-VEDOTIN, BENDAMUSTIN, RITUXIMAB, VENETOCLAX
     Route: 065
     Dates: start: 20220719, end: 20220801
  17. CYCLOPHOSPHAMIDE [Suspect]
     Active Substance: CYCLOPHOSPHAMIDE
     Indication: Diffuse large B-cell lymphoma
     Dosage: 3RD LINE, ALLO-SCT MSD CONDITIONIONING: FLUDARABINE, CYCLOPHOSPHAMIDE, THIOTEPA
     Dates: start: 20220208, end: 20220213
  18. POLIVY [Suspect]
     Active Substance: POLATUZUMAB VEDOTIN-PIIQ
     Indication: Diffuse large B-cell lymphoma
     Dosage: 4TH LINE, POLATUZUMAB-VEDOTIN, BENDAMUSTIN, RITUXIMAB, VENETOCLAX
     Dates: start: 20220719, end: 20220801

REACTIONS (5)
  - Thrombotic microangiopathy [Not Recovered/Not Resolved]
  - Lymphoma [Not Recovered/Not Resolved]
  - Cytomegalovirus infection [Recovering/Resolving]
  - Renal failure [Not Recovered/Not Resolved]
  - Product use issue [Unknown]

NARRATIVE: CASE EVENT DATE: 20220101
